FAERS Safety Report 5930334-0 (Version None)
Quarter: 2008Q4

REPORT INFORMATION
  Report Type: 
  Country: None (occurrence: None)
  Receive Date: 20081023
  Receipt Date: 20081013
  Transmission Date: 20090506
  Serious: Yes (Other)
  Sender: FDA-Public Use
  Company Number: 1000001412

PATIENT
  Age: 37 Year
  Sex: Female
  Weight: 60 kg

DRUGS (5)
  1. ESCITALOPRAM [Suspect]
     Indication: ANXIETY
     Dosage: 5 MG (5 MG, 1 IN 1 D) ,ORAL; 10 MG (10 MG, 1 IN 1 D) ,ORAL
     Route: 048
     Dates: start: 20080424, end: 20080101
  2. ESCITALOPRAM [Suspect]
     Indication: DEPRESSION
     Dosage: 5 MG (5 MG, 1 IN 1 D) ,ORAL; 10 MG (10 MG, 1 IN 1 D) ,ORAL
     Route: 048
     Dates: start: 20080424, end: 20080101
  3. ESCITALOPRAM [Suspect]
     Indication: ANXIETY
     Dosage: 5 MG (5 MG, 1 IN 1 D) ,ORAL; 10 MG (10 MG, 1 IN 1 D) ,ORAL
     Route: 048
     Dates: start: 20080101
  4. ESCITALOPRAM [Suspect]
     Indication: DEPRESSION
     Dosage: 5 MG (5 MG, 1 IN 1 D) ,ORAL; 10 MG (10 MG, 1 IN 1 D) ,ORAL
     Route: 048
     Dates: start: 20080101
  5. LEVOTHYROXINE SODIUM [Concomitant]

REACTIONS (1)
  - HYPOTHYROIDISM [None]
